FAERS Safety Report 24723043 (Version 3)
Quarter: 2025Q1

REPORT INFORMATION
  Report Type: Spontaneous
  Country: JP (occurrence: JP)
  Receive Date: 20241211
  Receipt Date: 20250318
  Transmission Date: 20250408
  Serious: Yes (Hospitalization, Other)
  Sender: RIGEL PHARMACEUTICALS
  Company Number: JP-KISSEI-TL20240727_P_1

PATIENT
  Sex: Male

DRUGS (6)
  1. TAVALISSE [Suspect]
     Active Substance: FOSTAMATINIB
     Indication: Immune thrombocytopenia
     Route: 048
     Dates: start: 2024, end: 20241108
  2. TAVALISSE [Suspect]
     Active Substance: FOSTAMATINIB
     Route: 048
     Dates: start: 20241118, end: 20241205
  3. TAVALISSE [Suspect]
     Active Substance: FOSTAMATINIB
     Dosage: REDUCED TO 100 MG, QD
     Route: 048
     Dates: start: 20241206
  4. TAVALISSE [Suspect]
     Active Substance: FOSTAMATINIB
     Route: 048
  5. ADRENAL GLAND [Concomitant]
     Indication: Immune thrombocytopenia
     Route: 065
  6. RITUXIMAB [Concomitant]
     Active Substance: RITUXIMAB
     Indication: Product used for unknown indication
     Route: 042

REACTIONS (4)
  - Platelet count increased [Recovered/Resolved]
  - Infection [Unknown]
  - Gastrointestinal haemorrhage [Unknown]
  - Underdose [Unknown]

NARRATIVE: CASE EVENT DATE: 20241108
